FAERS Safety Report 16530301 (Version 1)
Quarter: 2019Q3

REPORT INFORMATION
  Report Type: Spontaneous
  Country: SE (occurrence: SE)
  Receive Date: 20190704
  Receipt Date: 20190704
  Transmission Date: 20191004
  Serious: Yes (Hospitalization)
  Sender: FDA-Public Use
  Company Number: SE-SUN PHARMACEUTICAL INDUSTRIES LTD-2019RR-212453

PATIENT
  Age: 30 Year
  Sex: Male

DRUGS (5)
  1. OLANZAPINE. [Suspect]
     Active Substance: OLANZAPINE
     Indication: PRODUCT USED FOR UNKNOWN INDICATION
     Dosage: 87.5 MILLIGRAM, UNK
     Route: 065
     Dates: start: 20190218, end: 20190218
  2. LERGIGAN [PROMETHAZINE HYDROCHLORIDE] [Suspect]
     Active Substance: PROMETHAZINE HYDROCHLORIDE
     Indication: PRODUCT USED FOR UNKNOWN INDICATION
     Route: 048
     Dates: start: 20190218, end: 20190218
  3. ALIMEMAZINE [Suspect]
     Active Substance: TRIMEPRAZINE
     Indication: PRODUCT USED FOR UNKNOWN INDICATION
     Route: 065
     Dates: start: 20190218, end: 20190218
  4. CITALOPRAM [Suspect]
     Active Substance: CITALOPRAM HYDROBROMIDE
     Indication: PRODUCT USED FOR UNKNOWN INDICATION
     Route: 065
     Dates: start: 20190218, end: 20190218
  5. PROPAVAN [Suspect]
     Active Substance: PROPIOMAZINE
     Indication: PRODUCT USED FOR UNKNOWN INDICATION
     Route: 065
     Dates: start: 20190218, end: 20190218

REACTIONS (6)
  - Disorientation [Unknown]
  - Intentional overdose [Unknown]
  - Lethargy [Unknown]
  - Depressed level of consciousness [Unknown]
  - Mydriasis [Unknown]
  - Intentional self-injury [Unknown]

NARRATIVE: CASE EVENT DATE: 20190218
